FAERS Safety Report 11682250 (Version 4)
Quarter: 2016Q1

REPORT INFORMATION
  Report Type: Report from Study
  Country: US (occurrence: US)
  Receive Date: 20151029
  Receipt Date: 20160111
  Transmission Date: 20160525
  Serious: Yes (Hospitalization, Other)
  Sender: FDA-Public Use
  Company Number: US-GILEAD-2015-0178506

PATIENT
  Age: 38 Year
  Sex: Female
  Weight: 82.54 kg

DRUGS (19)
  1. COUMADIN [Concomitant]
     Active Substance: WARFARIN SODIUM
     Dosage: 7.5 MG, QHS
     Route: 048
  2. REMODULIN [Concomitant]
     Active Substance: TREPROSTINIL
     Dosage: 5 MG/ML QD
     Route: 042
  3. REVATIO [Concomitant]
     Active Substance: SILDENAFIL CITRATE
     Dosage: 20 MG, TID
     Route: 048
  4. AMBRISENTAN [Suspect]
     Active Substance: AMBRISENTAN
     Indication: PULMONARY ARTERIAL HYPERTENSION
     Dosage: 10 MG, UNK
     Route: 065
     Dates: start: 20080829
  5. ZOFRAN [Concomitant]
     Active Substance: ONDANSETRON HYDROCHLORIDE
     Indication: VOMITING
     Dosage: 4 MG, Q6HRS PRN
     Route: 048
  6. CELEXA [Concomitant]
     Active Substance: CITALOPRAM HYDROBROMIDE
     Dosage: 20 MG, QD
     Route: 048
  7. GABAPENTIN. [Concomitant]
     Active Substance: GABAPENTIN
     Dosage: 600 MG, QD
     Route: 048
  8. NEURONTIN [Concomitant]
     Active Substance: GABAPENTIN
     Dosage: 600 MG, QHS
     Route: 048
  9. COLACE [Concomitant]
     Active Substance: DOCUSATE SODIUM
     Dosage: 100 MG, UNK
     Route: 048
  10. DIGOXIN. [Concomitant]
     Active Substance: DIGOXIN
     Dosage: 125 UG, QD
     Route: 048
  11. HYDROXYCHLOROQUINE [Concomitant]
     Active Substance: HYDROXYCHLOROQUINE
     Dosage: 200 MG, QD
     Route: 048
  12. COUMADIN [Concomitant]
     Active Substance: WARFARIN SODIUM
     Dosage: 5 MG, QD
     Route: 048
  13. OMEPRAZOLE. [Concomitant]
     Active Substance: OMEPRAZOLE
     Dosage: 20 MG, QD
     Route: 048
  14. FUROSEMIDE. [Concomitant]
     Active Substance: FUROSEMIDE
     Dosage: 40 MG, QD
     Route: 048
  15. KLOR-CON [Concomitant]
     Active Substance: POTASSIUM CHLORIDE
     Dosage: 20 MEQ, QD
     Route: 048
  16. PRILOSEC [Concomitant]
     Active Substance: OMEPRAZOLE MAGNESIUM
     Dosage: 20 MG, QD
     Route: 048
  17. GABAPENTIN. [Concomitant]
     Active Substance: GABAPENTIN
     Dosage: 600 MG, BID
     Route: 048
  18. ALDACTONE [Concomitant]
     Active Substance: SPIRONOLACTONE
     Dosage: 25 MG, QD
     Route: 048
  19. SPIRONOLACTONE. [Concomitant]
     Active Substance: SPIRONOLACTONE
     Dosage: 25 MG, QD
     Route: 048

REACTIONS (23)
  - Uterine haemorrhage [Unknown]
  - Device related infection [Unknown]
  - Abdominal pain [Unknown]
  - Obesity [Unknown]
  - Gastrooesophageal reflux disease [Unknown]
  - Depression [Unknown]
  - Pneumonia klebsiella [Unknown]
  - Anxiety [Unknown]
  - Plantar fasciitis [Unknown]
  - Right ventricular failure [Unknown]
  - Escherichia infection [Unknown]
  - Subclavian vein thrombosis [Unknown]
  - Arthropathy [Unknown]
  - Diarrhoea [Unknown]
  - Anaemia [Unknown]
  - Exposure during pregnancy [Not Recovered/Not Resolved]
  - Panniculitis [Unknown]
  - Cervical dysplasia [Unknown]
  - Uterine leiomyoma [Unknown]
  - Pulmonary arterial hypertension [Unknown]
  - Device related infection [Unknown]
  - Hypergammaglobulinaemia [Unknown]
  - Chest pain [Unknown]

NARRATIVE: CASE EVENT DATE: 200808
